FAERS Safety Report 6663738-1 (Version None)
Quarter: 2010Q2

REPORT INFORMATION
  Report Type: 
  Country: None (occurrence: None)
  Receive Date: 20100401
  Receipt Date: 20100322
  Transmission Date: 20101027
  Serious: Yes (Other)
  Sender: FDA-Public Use
  Company Number: US-BAYER-201013447BCC

PATIENT
  Sex: Male
  Weight: 47 kg

DRUGS (9)
  1. ASPIRIN [Suspect]
     Indication: BACK PAIN
     Dosage: TOTAL DAILY DOSE: 500 MG  UNIT DOSE: 500 MG
     Route: 065
  2. CITRACAL D [Suspect]
     Indication: DRUG USE FOR UNKNOWN INDICATION
     Route: 065
     Dates: end: 20010201
  3. GLUCOTROL [Suspect]
     Indication: TYPE 2 DIABETES MELLITUS
     Route: 065
  4. GLUCOTROL XL [Suspect]
     Indication: DIABETES MELLITUS
     Route: 065
     Dates: start: 19980101, end: 19980101
  5. LISINOPRIL [Suspect]
     Indication: HYPERTENSION
     Route: 065
  6. PRAVASTATIN [Suspect]
     Indication: BLOOD CHOLESTEROL INCREASED
     Route: 065
  7. GLIPIZIDE [Suspect]
     Indication: DIABETES MELLITUS
     Dosage: TOTAL DAILY DOSE: 20 MG
     Route: 065
     Dates: start: 20080101
  8. PEDIBORO [Suspect]
     Indication: INFLAMMATION
     Route: 061
     Dates: start: 20010207, end: 20010207
  9. GLUCOPHAGE [Concomitant]
     Route: 065

REACTIONS (7)
  - BLOOD GLUCOSE INCREASED [None]
  - DRUG HYPERSENSITIVITY [None]
  - ERYTHEMA [None]
  - GLYCOSYLATED HAEMOGLOBIN INCREASED [None]
  - INSOMNIA [None]
  - PRURITUS [None]
  - RASH VESICULAR [None]
